FAERS Safety Report 5679459-8 (Version None)
Quarter: 2008Q1

REPORT INFORMATION
  Report Type: 
  Country: None (occurrence: None)
  Receive Date: 20080325
  Receipt Date: 20080313
  Transmission Date: 20080703
  Serious: Yes (Hospitalization)
  Sender: FDA-Public Use
  Company Number: JP-PFIZER INC-2008021388

PATIENT
  Sex: Female

DRUGS (3)
  1. GABAPEN [Suspect]
     Indication: PAIN
     Route: 048
     Dates: start: 20080220, end: 20080223
  2. LANDSEN [Concomitant]
     Route: 048
     Dates: start: 20071219, end: 20080219
  3. TRYPTANOL [Concomitant]
     Route: 048
     Dates: start: 20071107, end: 20080219

REACTIONS (3)
  - CHEST DISCOMFORT [None]
  - ERYTHEMA [None]
  - OEDEMA PERIPHERAL [None]
